FAERS Safety Report 7342547-4 (Version None)
Quarter: 2011Q1

REPORT INFORMATION
  Report Type: 
  Country: None (occurrence: None)
  Receive Date: 20110310
  Receipt Date: 20110225
  Transmission Date: 20110831
  Serious: No
  Sender: FDA-Public Use
  Company Number: PHHY2011US16094

PATIENT
  Sex: Male

DRUGS (8)
  1. TASIGNA [Suspect]
     Indication: CHRONIC MYELOID LEUKAEMIA
     Dosage: 800 MG, UNK
     Route: 048
  2. INSULIN TWO TYPES [Concomitant]
     Dosage: QID
  3. FISH OIL [Concomitant]
     Dosage: DAILY
  4. ASPIRIN [Concomitant]
     Dosage: 81 MG, UNK
  5. METOPROLOL [Concomitant]
     Dosage: 50 MG, UNK
  6. VITAMIN B-12 [Concomitant]
     Dosage: 1000 MG, UNK
  7. MULTIVITAMIN [Concomitant]
  8. LISINOPRIL [Concomitant]
     Dosage: 5 MG, UNK

REACTIONS (1)
  - INCORRECT DOSE ADMINISTERED [None]
